FAERS Safety Report 21014763 (Version 2)
Quarter: 2022Q3

REPORT INFORMATION
  Report Type: Spontaneous
  Country: JP (occurrence: JP)
  Receive Date: 20220628
  Receipt Date: 20220801
  Transmission Date: 20221027
  Serious: Yes (Other)
  Sender: FDA-Public Use
  Company Number: JP-MSD-M2022-25172

PATIENT
  Age: 64 Year
  Sex: Female

DRUGS (10)
  1. LAGEVRIO [Suspect]
     Active Substance: MOLNUPIRAVIR
     Indication: COVID-19 treatment
     Dosage: 800 MG BID AFTER BREAKFAST AND DINNER
     Route: 048
     Dates: start: 20220514, end: 20220515
  2. PL [Suspect]
     Active Substance: ACETAMINOPHEN\CAFFEINE\PROMETHAZINE\SALICYLAMIDE
     Indication: COVID-19
     Dosage: 1 GRAM QID, AFTER EACH MEAL, AT BEDTIME
     Route: 048
     Dates: start: 20220514, end: 20220517
  3. HUSCODE [Suspect]
     Active Substance: CHLORPHENIRAMINE MALEATE\DIHYDROCODEINE PHOSPHATE\METHYLEPHEDRINE HYDROCHLORIDE, DL-
     Indication: COVID-19
     Dosage: 3 DOSAGE FORM, TID , AFTER EVERY MEAL
     Route: 048
     Dates: start: 20220514, end: 20220515
  4. TRANSAMIN [Suspect]
     Active Substance: TRANEXAMIC ACID
     Indication: COVID-19
     Dosage: 250 MILLIGRAM, TID, AFTER EVERY MEAL
     Route: 048
     Dates: start: 20220514, end: 20220515
  5. CALONAL [Suspect]
     Active Substance: ACETAMINOPHEN
     Indication: COVID-19
     Dosage: 500 MILLIGRAM, TID, AFTER EVERY MEAL
     Route: 048
     Dates: start: 20220514, end: 20220515
  6. CARBOCYSTEINE [Suspect]
     Active Substance: CARBOCYSTEINE
     Indication: COVID-19
     Dosage: 500 MILLIGRAM, TID, AFTER EVERY MEAL
     Route: 048
     Dates: start: 20220514, end: 20220515
  7. MIYA-BM [Concomitant]
     Active Substance: CLOSTRIDIUM BUTYRICUM SPORES STRAIN M-55
     Dosage: UNK
     Route: 048
  8. AROMASIN [Concomitant]
     Active Substance: EXEMESTANE
     Dosage: 25 MILLIGRAM, QD
     Route: 048
  9. CALCIUM CARBONATE\CHOLECALCIFEROL\MAGNESIUM CARBONATE [Concomitant]
     Active Substance: CALCIUM CARBONATE\CHOLECALCIFEROL\MAGNESIUM CARBONATE
     Dosage: 2 DOSAGE FORM/DAY
     Route: 048
  10. AFINITOR [Concomitant]
     Active Substance: EVEROLIMUS
     Dosage: 5 MILLIGRAM, BID
     Route: 048

REACTIONS (2)
  - Dermatitis bullous [Unknown]
  - Vomiting [Recovered/Resolved]

NARRATIVE: CASE EVENT DATE: 20220514
